FAERS Safety Report 14163554 (Version 1)
Quarter: 2017Q4

REPORT INFORMATION
  Report Type: Report from Study
  Country: US (occurrence: US)
  Receive Date: 20171106
  Receipt Date: 20171106
  Transmission Date: 20180321
  Serious: Yes (Disabling)
  Sender: FDA-Public Use
  Company Number: US-CELGENEUS-USA-20171101263

PATIENT
  Age: 54 Year
  Sex: Male

DRUGS (1)
  1. REVLIMID [Suspect]
     Active Substance: LENALIDOMIDE
     Indication: PLASMA CELL MYELOMA
     Dosage: MAINTENANCE DOSE
     Route: 048
     Dates: start: 2015, end: 2016

REACTIONS (2)
  - Fatigue [Recovered/Resolved]
  - Plasma cell myeloma recurrent [Recovered/Resolved]

NARRATIVE: CASE EVENT DATE: 2016
